FAERS Safety Report 6009963-4 (Version None)
Quarter: 2008Q4

REPORT INFORMATION
  Report Type: 
  Country: None (occurrence: None)
  Receive Date: 20081218
  Receipt Date: 20081211
  Transmission Date: 20090506
  Serious: Yes (Life-Threatening, Hospitalization, Other)
  Sender: FDA-Public Use
  Company Number: US-JNJFOC-20080704131

PATIENT
  Sex: Female
  Weight: 108.86 kg

DRUGS (3)
  1. TOPAMAX [Suspect]
     Indication: MIGRAINE PROPHYLAXIS
     Route: 048
  2. ATENOLOL [Concomitant]
     Indication: MIGRAINE
     Route: 048
  3. SYNTHROID [Concomitant]
     Indication: HYPOTHYROIDISM

REACTIONS (5)
  - BREAST CANCER [None]
  - DEEP VEIN THROMBOSIS [None]
  - MIGRAINE [None]
  - PULMONARY EMBOLISM [None]
  - WEIGHT DECREASED [None]
